FAERS Safety Report 9868894 (Version 1)
Quarter: 2014Q1

REPORT INFORMATION
  Report Type: Spontaneous
  Country: US (occurrence: US)
  Receive Date: 20140204
  Receipt Date: 20140204
  Transmission Date: 20141002
  Serious: No
  Sender: FDA-Public Use
  Company Number: US-009507513-1402USA000835

PATIENT
  Age: 53 Year
  Sex: Male

DRUGS (3)
  1. CASPOFUNGIN ACETATE [Suspect]
  2. VANCOMYCIN [Concomitant]
  3. PIPERACILLIN SODIUM (+) TAZOBACTAM SODIUM [Concomitant]

REACTIONS (1)
  - Drug ineffective [Unknown]
